FAERS Safety Report 7478435-2 (Version None)
Quarter: 2011Q2

REPORT INFORMATION
  Report Type: 
  Country: None (occurrence: None)
  Receive Date: 20110513
  Receipt Date: 20100624
  Transmission Date: 20111010
  Serious: No
  Sender: FDA-Public Use
  Company Number: US-PFIZER INC-2010079272

PATIENT
  Age: 45 Year
  Sex: Female
  Weight: 95.238 kg

DRUGS (2)
  1. CELEBREX [Suspect]
     Indication: ARTHRITIS
     Dosage: UNK MG, 1X/DAY
     Route: 048
     Dates: start: 20100618
  2. LYRICA [Concomitant]
     Indication: SPONDYLITIS
     Dosage: UNK MG, UNK
     Route: 048

REACTIONS (2)
  - HYPERSENSITIVITY [None]
  - URTICARIA [None]
